FAERS Safety Report 21792989 (Version 1)
Quarter: 2022Q4

REPORT INFORMATION
  Report Type: Spontaneous
  Country: SA (occurrence: SA)
  Receive Date: 20221229
  Receipt Date: 20221229
  Transmission Date: 20230112
  Serious: No
  Sender: FDA-Public Use
  Company Number: SA-ALKEM LABORATORIES LIMITED-SA-ALKEM-2022-13885

PATIENT
  Age: 5 Month
  Sex: Female
  Weight: 3.59 kg

DRUGS (6)
  1. SIROLIMUS [Suspect]
     Active Substance: SIROLIMUS
     Indication: Hyperinsulinism
     Dosage: 0.16-3 MG/DAY (MAXIMUM DOSE OF?9 MG/M2/DAY)
     Route: 065
  2. SIROLIMUS [Suspect]
     Active Substance: SIROLIMUS
     Dosage: 0.5 MILLIGRAM/SQ. METER, QD
     Route: 065
  3. DIAZOXIDE [Suspect]
     Active Substance: DIAZOXIDE
     Indication: Hyperinsulinism
     Dosage: 20 MILLIGRAM/KILOGRAM, QD
     Route: 065
  4. OCTREOTIDE [Suspect]
     Active Substance: OCTREOTIDE
     Indication: Hyperinsulinism
     Dosage: 40 MICROGRAM/KILOGRAM, QD
     Route: 065
  5. GLUCAGON [Suspect]
     Active Substance: GLUCAGON
     Indication: Hyperinsulinism
     Dosage: 1 MILLIGRAM, QD
     Route: 042
  6. DEXTROSE [Suspect]
     Active Substance: DEXTROSE
     Indication: Hyperinsulinism
     Dosage: 9 MILLIGRAM PER MINUTE
     Route: 042

REACTIONS (3)
  - Low density lipoprotein increased [Unknown]
  - Leukocytosis [Unknown]
  - Drug ineffective [Unknown]
